FAERS Safety Report 16329105 (Version 1)
Quarter: 2019Q2

REPORT INFORMATION
  Report Type: Spontaneous
  Country: US (occurrence: US)
  Receive Date: 20190519
  Receipt Date: 20190519
  Transmission Date: 20190711
  Serious: Yes (Other)
  Sender: FDA-Public Use
  Company Number: US-PIRAMAL ENTERPRISES LIMITED-2019-PEL-000138

PATIENT

DRUGS (3)
  1. GABLOFEN [Suspect]
     Active Substance: BACLOFEN
     Indication: PAIN
     Dosage: 4.81 MICROGRAM PER DAY
     Route: 037
  2. DILAUDID [Suspect]
     Active Substance: HYDROMORPHONE HYDROCHLORIDE
     Indication: PAIN
     Dosage: 0.721 MILLIGRAM PER DAY
     Route: 037
  3. BUPIVACAINE. [Suspect]
     Active Substance: BUPIVACAINE
     Indication: PAIN
     Dosage: TOTAL DOSE OF 0.481
     Route: 037

REACTIONS (7)
  - Renal pain [Unknown]
  - Device issue [Recovered/Resolved]
  - Haemorrhage [Unknown]
  - Implant site infection [Unknown]
  - Urethral pain [Unknown]
  - Dysuria [Unknown]
  - Drug ineffective for unapproved indication [Unknown]

NARRATIVE: CASE EVENT DATE: 20190402
